FAERS Safety Report 7704458-1 (Version None)
Quarter: 2011Q3

REPORT INFORMATION
  Report Type: 
  Country: None (occurrence: None)
  Receive Date: 20110823
  Receipt Date: 20110816
  Transmission Date: 20111222
  Serious: Yes (Other)
  Sender: FDA-Public Use
  Company Number: US-B.I. PHARMACEUTICALS,INC./RIDGEFIELD-2011-BP-15376BP

PATIENT
  Age: 82 Year
  Sex: Female

DRUGS (13)
  1. INDERAL [Concomitant]
     Indication: RAYNAUD'S PHENOMENON
     Dosage: 20 MG
     Route: 048
  2. PRADAXA [Suspect]
     Indication: ATRIAL FIBRILLATION
     Dosage: 300 MG
     Route: 048
     Dates: start: 20110501
  3. LOTEMAX [Concomitant]
     Indication: GLAUCOMA
  4. VITAMIN D [Concomitant]
     Indication: MINERAL SUPPLEMENTATION
     Dosage: 2857.1429 U
     Route: 048
  5. CALCIUM CARBONATE [Concomitant]
     Indication: MINERAL SUPPLEMENTATION
     Dosage: 1000 MG
     Route: 048
  6. LASIX [Concomitant]
     Indication: CARDIAC DISORDER
     Dosage: 20 MG
  7. POTASSIUM [Concomitant]
     Indication: MINERAL SUPPLEMENTATION
     Route: 048
  8. LYRICA [Concomitant]
     Indication: RAYNAUD'S PHENOMENON
     Dosage: 50 MG
  9. OMEPRAZOLE [Concomitant]
     Indication: GASTROOESOPHAGEAL REFLUX DISEASE
     Dosage: 20 MG
     Route: 048
  10. XALATAN [Concomitant]
     Indication: GLAUCOMA
  11. FOLIC ACID [Concomitant]
     Indication: MINERAL SUPPLEMENTATION
     Dosage: 400 MG
     Route: 048
  12. TRIAMTERENE [Concomitant]
     Indication: CARDIAC DISORDER
     Route: 048
  13. ASCORBIC ACID [Concomitant]
     Indication: MINERAL SUPPLEMENTATION
     Dosage: 500 MG
     Route: 048

REACTIONS (5)
  - NAUSEA [None]
  - BACK PAIN [None]
  - INTRACARDIAC THROMBUS [None]
  - DYSPEPSIA [None]
  - CHEST PAIN [None]
